FAERS Safety Report 8360299-6 (Version None)
Quarter: 2012Q2

REPORT INFORMATION
  Report Type: 
  Country: None (occurrence: None)
  Receive Date: 20120515
  Receipt Date: 20120504
  Transmission Date: 20120825
  Serious: Yes (Death)
  Sender: FDA-Public Use
  Company Number: US-NOVOPROD-332515

PATIENT
  Age: 5 Year
  Sex: Male
  Weight: 25 kg

DRUGS (8)
  1. NOVOSEVEN RT [Suspect]
     Indication: PULMONARY HAEMORRHAGE
     Dosage: VARIOUS DOSES
     Route: 042
     Dates: start: 20110706, end: 20110724
  2. ANTIHEMOPHILIC FACTOR (HUMAN) [Suspect]
     Indication: IMMUNE TOLERANCE INDUCTION
  3. HEPARIN [Concomitant]
     Indication: PULMONARY EMBOLISM
  4. NOVOSEVEN RT [Suspect]
     Dosage: 275 A?G/KG, UNK
  5. RITUXIMAB [Concomitant]
     Indication: PULMONARY HAEMORRHAGE
  6. ALPHANATE [Concomitant]
     Indication: COAGULATION FACTOR VIII LEVEL
  7. FEIBA [Suspect]
     Indication: PULMONARY HAEMORRHAGE
  8. ANTIHEMOPHILIC FACTOR (HUMAN) [Suspect]
     Indication: PULMONARY HAEMORRHAGE

REACTIONS (1)
  - PULMONARY HAEMORRHAGE [None]
